FAERS Safety Report 20577561 (Version 1)
Quarter: 2022Q1

REPORT INFORMATION
  Report Type: Spontaneous
  Country: US (occurrence: US)
  Receive Date: 20220310
  Receipt Date: 20220310
  Transmission Date: 20220424
  Serious: Yes (Other)
  Sender: FDA-Public Use
  Company Number: US-GLAXOSMITHKLINE-US2022GSK043171

PATIENT
  Sex: Male

DRUGS (2)
  1. RANITIDINE [Suspect]
     Active Substance: RANITIDINE
     Indication: Recalled product
     Dosage: 150 MG, QD
     Route: 065
     Dates: start: 201011, end: 201901
  2. RANITIDINE [Suspect]
     Active Substance: RANITIDINE
     Indication: Recalled product
     Dosage: 150 MG, QD
     Route: 065
     Dates: start: 201011, end: 201901

REACTIONS (1)
  - Renal cancer [Unknown]
